FAERS Safety Report 11021924 (Version 2)
Quarter: 2015Q2

REPORT INFORMATION
  Report Type: Spontaneous
  Country: FR (occurrence: FR)
  Receive Date: 20150413
  Receipt Date: 20150421
  Transmission Date: 20150821
  Serious: Yes (Other)
  Sender: FDA-Public Use
  Company Number: FR-009507513-1504FRA009355

PATIENT
  Age: 44 Year
  Sex: Male

DRUGS (1)
  1. ORGARAN [Suspect]
     Active Substance: DANAPAROID SODIUM
     Indication: HEPARIN-INDUCED THROMBOCYTOPENIA
     Dosage: STRENGTH: 750IU/0.6ML
     Route: 041
     Dates: start: 20150226, end: 20150308

REACTIONS (3)
  - Product label confusion [Recovered/Resolved]
  - Anticoagulation drug level decreased [Recovered/Resolved]
  - Incorrect dose administered [Recovered/Resolved]

NARRATIVE: CASE EVENT DATE: 20150226
